FAERS Safety Report 17183725 (Version 3)
Quarter: 2020Q4

REPORT INFORMATION
  Report Type: Spontaneous
  Country: CA (occurrence: CA)
  Receive Date: 20191220
  Receipt Date: 20201028
  Transmission Date: 20210113
  Serious: Yes (Other)
  Sender: FDA-Public Use
  Company Number: CA-PFIZER INC-2019543728

PATIENT
  Sex: Female

DRUGS (5)
  1. XELJANZ [Concomitant]
     Active Substance: TOFACITINIB CITRATE
     Indication: RHEUMATOID ARTHRITIS
     Dosage: 5 MG, 2X/DAY
     Route: 048
     Dates: start: 20200221
  2. CORTISONE [Concomitant]
     Active Substance: CORTISONE
     Dosage: UNK, AS NEEDED
     Route: 030
  3. PLAQUENIL [Suspect]
     Active Substance: HYDROXYCHLOROQUINE SULFATE
     Dosage: UNK
     Dates: end: 201802
  4. METHOTREXATE SODIUM. [Suspect]
     Active Substance: METHOTREXATE SODIUM
     Dosage: UNK
     Route: 065
  5. METHOTREXATE SODIUM. [Suspect]
     Active Substance: METHOTREXATE SODIUM
     Dosage: UNK
     Route: 065
     Dates: start: 2010, end: 201802

REACTIONS (9)
  - Diabetes mellitus [Unknown]
  - Drug ineffective [Unknown]
  - Neutrophil count increased [Unknown]
  - Flank pain [Unknown]
  - Anaemia [Unknown]
  - Lymphoma [Unknown]
  - White blood cell disorder [Unknown]
  - White blood cell count increased [Unknown]
  - Splenomegaly [Unknown]
